FAERS Safety Report 9633876 (Version 1)
Quarter: 2013Q4

REPORT INFORMATION
  Report Type: Spontaneous
  Country: FR (occurrence: FR)
  Receive Date: 20131021
  Receipt Date: 20131021
  Transmission Date: 20140711
  Serious: Yes (Hospitalization)
  Sender: FDA-Public Use
  Company Number: FR-ELI_LILLY_AND_COMPANY-FR201310002725

PATIENT
  Age: 57 Year
  Sex: Female

DRUGS (12)
  1. CYMBALTA [Suspect]
     Indication: DISABILITY
     Dosage: 60 MG, QD
     Route: 048
     Dates: start: 201203
  2. ATARAX /00058402/ [Suspect]
     Indication: AGITATION
     Dosage: 25 MG, BID
     Route: 048
     Dates: start: 201203, end: 20121206
  3. NEULEPTIL /00038401/ [Suspect]
     Indication: PSYCHOMOTOR SKILLS IMPAIRED
     Dosage: 50 MG, BID
     Route: 048
     Dates: end: 20121206
  4. PARKINANE LP [Suspect]
     Indication: PSYCHOMOTOR SKILLS IMPAIRED
     Dosage: 5 MG, QD
     Route: 048
     Dates: end: 20121206
  5. CETIRIZINE [Concomitant]
  6. IKARAN [Concomitant]
  7. INIPOMP [Concomitant]
  8. LYRICA [Concomitant]
  9. NOCTAMIDE [Concomitant]
  10. SERESTA [Concomitant]
  11. TRANSIPEG                          /00754501/ [Concomitant]
  12. TRIMEBUTINE [Concomitant]

REACTIONS (5)
  - Injury [Unknown]
  - Intestinal obstruction [Recovered/Resolved]
  - Faecaloma [Recovered/Resolved]
  - Fall [Unknown]
  - Off label use [Unknown]
